FAERS Safety Report 11016851 (Version 2)
Quarter: 2015Q2

REPORT INFORMATION
  Report Type: Spontaneous
  Country: US (occurrence: US)
  Receive Date: 20150412
  Receipt Date: 20150525
  Transmission Date: 20150821
  Serious: No
  Sender: FDA-Public Use
  Company Number: US-JNJFOC-20150102042

PATIENT
  Age: 14 Year
  Sex: Female

DRUGS (2)
  1. ORTHO EVRA [Suspect]
     Active Substance: ETHINYL ESTRADIOL\NORELGESTROMIN
     Indication: ANGER
     Route: 062
     Dates: start: 20141223
  2. ORTHO EVRA [Suspect]
     Active Substance: ETHINYL ESTRADIOL\NORELGESTROMIN
     Indication: HORMONE REPLACEMENT THERAPY
     Route: 062
     Dates: start: 20141223

REACTIONS (7)
  - Drug dose omission [Unknown]
  - Product use issue [Unknown]
  - Aggression [Unknown]
  - Drug administration error [Unknown]
  - Application site vesicles [Unknown]
  - Application site erythema [Not Recovered/Not Resolved]
  - Application site irritation [Recovering/Resolving]

NARRATIVE: CASE EVENT DATE: 20141223
